FAERS Safety Report 5385507-5 (Version None)
Quarter: 2007Q3

REPORT INFORMATION
  Report Type: 
  Country: None (occurrence: None)
  Receive Date: 20070709
  Receipt Date: 20070626
  Transmission Date: 20080115
  Serious: Yes (Other)
  Sender: FDA-Public Use
  Company Number: S07-FRA-02865-01

PATIENT
  Age: 61 Year
  Sex: Male

DRUGS (7)
  1. MEMANTINE HCL [Suspect]
     Indication: DEMENTIA ALZHEIMER'S TYPE
     Dosage: 10 MG BID PO
     Route: 048
     Dates: start: 20050201, end: 20051101
  2. EXELON [Concomitant]
  3. FORADIL [Concomitant]
  4. MIFLASONE                    (BECLOMETASONE DIPROPIONATE) [Concomitant]
  5. STABLON             (TIANEPTINE) [Concomitant]
  6. ASPIRIN [Concomitant]
  7. PRAVASTATIN [Concomitant]

REACTIONS (2)
  - BRONCHOSPASM [None]
  - CONDITION AGGRAVATED [None]
